FAERS Safety Report 8107848-0 (Version None)
Quarter: 2012Q1

REPORT INFORMATION
  Report Type: 
  Country: None (occurrence: None)
  Receive Date: 20120202
  Receipt Date: 20120119
  Transmission Date: 20120608
  Serious: Yes (Disabling)
  Sender: FDA-Public Use
  Company Number: BE-WATSON-2011-08168

PATIENT
  Age: 49 Year
  Sex: Female

DRUGS (2)
  1. EXEMESTANE [Suspect]
     Indication: BREAST CANCER
     Dosage: 25 MG, UNK
     Route: 048
     Dates: start: 20080201
  2. TRELSTAR [Suspect]
     Indication: BREAST CANCER
     Dosage: 3.75 MG, ONCE A MONTH
     Route: 030
     Dates: start: 20070801, end: 20110601

REACTIONS (1)
  - DEPRESSED MOOD [None]
